FAERS Safety Report 7106503-3 (Version None)
Quarter: 2010Q4

REPORT INFORMATION
  Report Type: 
  Country: None (occurrence: None)
  Receive Date: 20101116
  Receipt Date: 20101109
  Transmission Date: 20110411
  Serious: Yes (Other)
  Sender: FDA-Public Use
  Company Number: US-PFIZER INC-2010145912

PATIENT
  Age: 49 Year
  Weight: 77.098 kg

DRUGS (3)
  1. GEODON [Suspect]
     Indication: BIPOLAR DISORDER
     Dosage: 80 MG, 2X/DAY
     Dates: start: 20100416, end: 20100801
  2. PRISTIQ [Concomitant]
     Dosage: 50 MG, 1X/DAY
  3. KLONOPIN [Concomitant]
     Dosage: FREQUENCY: 2X/DAY,

REACTIONS (2)
  - SPEECH DISORDER [None]
  - TONGUE DISORDER [None]
